FAERS Safety Report 6016852-8 (Version None)
Quarter: 2008Q4

REPORT INFORMATION
  Report Type: 
  Country: None (occurrence: None)
  Receive Date: 20081219
  Receipt Date: 20081209
  Transmission Date: 20090506
  Serious: Yes (Hospitalization)
  Sender: FDA-Public Use
  Company Number: ENT 2008-0201

PATIENT
  Age: 76 Year
  Sex: Female

DRUGS (4)
  1. COMTAN [Suspect]
     Indication: DRUG EFFECT DECREASED
     Dosage: 100 MG (100 MG, 1 IN 1 D)
     Route: 048
     Dates: start: 20081021
  2. E C DOPAL [Concomitant]
  3. PRAMIPEXOLE DIHYDROCHLORIDE [Concomitant]
  4. DOMIN [Concomitant]

REACTIONS (4)
  - CONTUSION [None]
  - HALLUCINATION [None]
  - HUMERUS FRACTURE [None]
  - LOSS OF CONSCIOUSNESS [None]
